FAERS Safety Report 7073003-9 (Version None)
Quarter: 2010Q4

REPORT INFORMATION
  Report Type: 
  Country: None (occurrence: None)
  Receive Date: 20101029
  Receipt Date: 20100921
  Transmission Date: 20110411
  Serious: No
  Sender: FDA-Public Use
  Company Number: A0854153A

PATIENT
  Age: 59 Year
  Sex: Female

DRUGS (11)
  1. ADVAIR DISKUS 100/50 [Suspect]
     Indication: ASTHMA
     Dosage: 1PUFF TWICE PER DAY
     Route: 055
     Dates: start: 20030101
  2. SPIRIVA [Concomitant]
  3. PROAIR HFA [Concomitant]
  4. BENICAR HCT [Concomitant]
  5. TRICOR [Concomitant]
  6. LIPITOR [Concomitant]
  7. AMLODIPINE [Concomitant]
  8. ESTRADIOL [Concomitant]
  9. FISH OIL [Concomitant]
  10. PROPAFENONE HCL [Concomitant]
  11. DILTIAZEM [Concomitant]

REACTIONS (2)
  - DYSPNOEA [None]
  - PRODUCT QUALITY ISSUE [None]
